FAERS Safety Report 6360517-X (Version None)
Quarter: 2009Q3

REPORT INFORMATION
  Report Type: 
  Country: None (occurrence: None)
  Receive Date: 20090917
  Receipt Date: 20090914
  Transmission Date: 20100115
  Serious: Yes (Hospitalization, Other)
  Sender: FDA-Public Use
  Company Number: JP-ABBOTT-09P-087-0597226-00

PATIENT
  Age: 23 Year
  Sex: Female

DRUGS (10)
  1. KALETRA [Suspect]
     Indication: HIV INFECTION
     Route: 048
     Dates: start: 20080121
  2. EPZICOM [Suspect]
     Indication: HIV INFECTION
     Route: 048
     Dates: start: 20081003
  3. EPIVIR [Concomitant]
     Indication: HIV INFECTION
     Route: 048
     Dates: start: 20080121, end: 20081002
  4. ZIAGEN [Concomitant]
     Indication: HIV INFECTION
     Route: 048
     Dates: start: 20080121, end: 20081002
  5. FERROUS CITRATE [Concomitant]
     Indication: ANAEMIA
     Dates: start: 20080513, end: 20080807
  6. FERROUS CITRATE [Concomitant]
     Dates: end: 20080806
  7. PENTAMIDINE ISETHIONATE [Concomitant]
     Indication: ANTIFUNGAL PROPHYLAXIS
     Dosage: 300 MG/ 2-3WEEKS
     Route: 055
     Dates: start: 20080121, end: 20080421
  8. HEPARIN CALCIUM [Concomitant]
     Indication: THROMBOSIS PROPHYLAXIS
     Dates: start: 20080507, end: 20080507
  9. FERRIC OXIDE, SACCHARATED [Concomitant]
     Indication: ANAEMIA
     Dates: start: 20080512, end: 20080512
  10. GLUCOSE [Concomitant]
     Indication: ANAEMIA
     Dates: start: 20080512, end: 20080512

REACTIONS (2)
  - CAESAREAN SECTION [None]
  - PREMATURE LABOUR [None]
